FAERS Safety Report 12409153 (Version 2)
Quarter: 2016Q2

REPORT INFORMATION
  Report Type: Report from Study
  Country: IT (occurrence: IT)
  Receive Date: 20160526
  Receipt Date: 20160610
  Transmission Date: 20160815
  Serious: Yes (Other)
  Sender: FDA-Public Use
  Company Number: IT-BRISTOL-MYERS SQUIBB COMPANY-18965327

PATIENT
  Age: 73 Year
  Sex: Male
  Weight: 80 kg

DRUGS (7)
  1. DEXAMETHASONE. [Suspect]
     Active Substance: DEXAMETHASONE
     Indication: PLASMA CELL MYELOMA
     Dosage: RECENT DOSE 28MAY2013,10JUL13,20AUG13  C7D1:ON 11JUN2013. RESTARTED ON 4SEP13
     Route: 048
     Dates: start: 20121226
  2. LANSOPRAZOLE. [Concomitant]
     Active Substance: LANSOPRAZOLE
     Indication: PRODUCT USED FOR UNKNOWN INDICATION
     Dosage: UNK
     Route: 065
     Dates: start: 20121224
  3. ELOTUZUMAB. [Suspect]
     Active Substance: ELOTUZUMAB
     Indication: PLASMA CELL MYELOMA
     Dosage: RECENT DOSE ON:15MAY2013,C7D1 ON 12JUN2013,RECENT DOSE:11JUL2013 AND STOPPED ON 11JUL2013(D1C8)
     Route: 042
     Dates: start: 20121227, end: 20130807
  4. BACTRIM [Concomitant]
     Active Substance: SULFAMETHOXAZOLE\TRIMETHOPRIM
     Indication: PRODUCT USED FOR UNKNOWN INDICATION
     Dosage: UNK
     Route: 065
     Dates: start: 20121224
  5. DEXAMETHASONE. [Suspect]
     Active Substance: DEXAMETHASONE
     Indication: PLASMA CELL MYELOMA
     Dosage: RECENT:15MAY(C6D1),C7D1:12JUN13  RECENT:11JUL13,STPD:11JUL13(C8D1,  :20AUG13)
     Route: 042
     Dates: start: 20121227, end: 20130807
  6. CARDIOASPIRINE [Concomitant]
     Active Substance: ASPIRIN
     Indication: PRODUCT USED FOR UNKNOWN INDICATION
     Dosage: UNK
     Route: 065
     Dates: start: 20121224
  7. LENALIDOMIDE [Suspect]
     Active Substance: LENALIDOMIDE
     Indication: PLASMA CELL MYELOMA
     Dosage: INTERPT:28MAY2013, 02JUL2013,C7D1 ON 12JUN13  RECENT DOSE ON:28MAY2013,20AUG13  RESTARTED ON 4SEP13
     Route: 048
     Dates: start: 20121227

REACTIONS (2)
  - Alanine aminotransferase increased [Recovered/Resolved]
  - Aspartate aminotransferase increased [Recovered/Resolved]

NARRATIVE: CASE EVENT DATE: 20130529
